FAERS Safety Report 9130245 (Version 1)
Quarter: 2013Q1

REPORT INFORMATION
  Report Type: Spontaneous
  Country: US (occurrence: US)
  Receive Date: 20130228
  Receipt Date: 20130228
  Transmission Date: 20140127
  Serious: No
  Sender: FDA-Public Use
  Company Number: US-ASTRAZENECA-2013SE11249

PATIENT
  Age: 78 Year
  Sex: Female

DRUGS (1)
  1. TOPROL XL [Suspect]
     Indication: HYPERTENSION
     Route: 048

REACTIONS (2)
  - Pruritus [Unknown]
  - Sleep disorder due to general medical condition, insomnia type [Unknown]
